FAERS Safety Report 24814041 (Version 1)
Quarter: 2025Q1

REPORT INFORMATION
  Report Type: Spontaneous
  Country: US (occurrence: US)
  Receive Date: 20250107
  Receipt Date: 20250107
  Transmission Date: 20250409
  Serious: No
  Sender: TEVA
  Company Number: US-TEVA-VS-3278819

PATIENT
  Age: 43 Year
  Sex: Female

DRUGS (1)
  1. ADDERALL XR [Suspect]
     Active Substance: AMPHETAMINE ASPARTATE\AMPHETAMINE SULFATE\DEXTROAMPHETAMINE SACCHARATE\DEXTROAMPHETAMINE SULFATE
     Indication: Product used for unknown indication
     Route: 065
     Dates: end: 20241220

REACTIONS (8)
  - Panic attack [Unknown]
  - Feeling abnormal [Unknown]
  - Confusional state [Unknown]
  - Nightmare [Unknown]
  - Drug ineffective [Unknown]
  - Anger [Unknown]
  - Headache [Unknown]
  - Disease progression [Unknown]
